FAERS Safety Report 25051981 (Version 1)
Quarter: 2025Q1

REPORT INFORMATION
  Report Type: Spontaneous
  Country: US (occurrence: None)
  Receive Date: 20250305
  Receipt Date: 20250305
  Transmission Date: 20250409
  Serious: No
  Sender: FDA-CTU
  Company Number: None

PATIENT
  Age: 54 Year
  Sex: Male

DRUGS (1)
  1. GAMUNEX-C [Suspect]
     Active Substance: HUMAN IMMUNOGLOBULIN G
     Indication: Neuropathy peripheral
     Dosage: 90 GM Q4WEEKS  INTRAVENOUS?
     Route: 042
     Dates: start: 20250127

REACTIONS (1)
  - Rash [None]

NARRATIVE: CASE EVENT DATE: 20250305
